FAERS Safety Report 20060282 (Version 1)
Quarter: 2021Q4

REPORT INFORMATION
  Report Type: Spontaneous
  Country: AR (occurrence: AR)
  Receive Date: 20211112
  Receipt Date: 20211112
  Transmission Date: 20220303
  Serious: No
  Sender: FDA-Public Use
  Company Number: AR-LUPIN PHARMACEUTICALS INC.-2021-21745

PATIENT
  Age: 17 Day
  Sex: Male
  Weight: 3.421 kg

DRUGS (4)
  1. CEFTRIAXONE [Suspect]
     Active Substance: CEFTRIAXONE
     Indication: COVID-19
     Dosage: 100 MILLIGRAM/KILOGRAM, QD
     Route: 065
  2. ACYCLOVIR [Suspect]
     Active Substance: ACYCLOVIR
     Indication: COVID-19
     Dosage: 60 MILLIGRAM/KILOGRAM, QD
     Route: 065
  3. PHENOBARBITAL [Concomitant]
     Active Substance: PHENOBARBITAL
     Indication: Seizure
     Dosage: 5 MILLIGRAM/KILOGRAM, QD
     Route: 065
  4. ACENOCOUMAROL [Concomitant]
     Active Substance: ACENOCOUMAROL
     Indication: Disseminated intravascular coagulation
     Dosage: 0.1 MILLIGRAM/KILOGRAM, QD
     Route: 065

REACTIONS (1)
  - Off label use [Unknown]
